FAERS Safety Report 14175910 (Version 1)
Quarter: 2017Q4

REPORT INFORMATION
  Report Type: Spontaneous
  Country: US (occurrence: None)
  Receive Date: 20171109
  Receipt Date: 20171109
  Transmission Date: 20180321
  Serious: No
  Sender: FDA-Public Use
  Company Number: None

PATIENT
  Age: 75 Year
  Sex: Female

DRUGS (13)
  1. TARCEVA [Suspect]
     Active Substance: ERLOTINIB HYDROCHLORIDE
     Indication: BRONCHIAL CARCINOMA
     Route: 048
     Dates: start: 20150915
  2. CLOTRIMAZZOLE [Concomitant]
  3. LOSARTAN. [Concomitant]
     Active Substance: LOSARTAN
  4. METOPROLOL. [Concomitant]
     Active Substance: METOPROLOL
  5. METFORMIN [Concomitant]
     Active Substance: METFORMIN HYDROCHLORIDE
  6. VENLAFAXINE [Concomitant]
     Active Substance: VENLAFAXINE HYDROCHLORIDE
  7. DOXYCYCL [Concomitant]
  8. FLUCONAZOLE. [Concomitant]
     Active Substance: FLUCONAZOLE
  9. ALBUTEROL. [Concomitant]
     Active Substance: ALBUTEROL
  10. ASPRIIN [Concomitant]
  11. HCT [Concomitant]
     Active Substance: HYDROCHLOROTHIAZIDE
  12. OMEPRAZOL [Concomitant]
     Active Substance: OMEPRAZOLE
  13. MYSTAT/TRAIM [Concomitant]

REACTIONS (1)
  - Cerebrovascular accident [None]

NARRATIVE: CASE EVENT DATE: 20171001
